FAERS Safety Report 5479249-5 (Version None)
Quarter: 2007Q4

REPORT INFORMATION
  Report Type: 
  Country: None (occurrence: None)
  Receive Date: 20071008
  Receipt Date: 20070927
  Transmission Date: 20080405
  Serious: Yes (Hospitalization)
  Sender: FDA-Public Use
  Company Number: FR-JNJFOC-20070902714

PATIENT
  Sex: Male
  Weight: 56.3 kg

DRUGS (3)
  1. RISPERDAL [Suspect]
     Indication: SCHIZOPHRENIA
     Route: 048
  2. TRANXENE [Concomitant]
     Indication: SEDATION
     Route: 048
  3. NOZINAN [Concomitant]
     Indication: SEDATION

REACTIONS (5)
  - BLOOD CREATINE PHOSPHOKINASE INCREASED [None]
  - CONFUSIONAL STATE [None]
  - EOSINOPHILIA [None]
  - HYPERTHERMIA [None]
  - TACHYCARDIA [None]
